FAERS Safety Report 7008604-7 (Version None)
Quarter: 2010Q3

REPORT INFORMATION
  Report Type: 
  Country: None (occurrence: None)
  Receive Date: 20100922
  Receipt Date: 20100909
  Transmission Date: 20110219
  Serious: Yes (Hospitalization)
  Sender: FDA-Public Use
  Company Number: HU-ELI_LILLY_AND_COMPANY-HU201009002401

PATIENT
  Age: 28 Year
  Sex: Female

DRUGS (1)
  1. ZYPADHERA [Suspect]
     Dosage: 300 MG/2 WEEKS
     Route: 030
     Dates: start: 20100601

REACTIONS (2)
  - INFECTION [None]
  - RENAL FAILURE [None]
